FAERS Safety Report 11115352 (Version 1)
Quarter: 2015Q2

REPORT INFORMATION
  Report Type: Report from Study
  Country: US (occurrence: None)
  Receive Date: 20150514
  Receipt Date: 20150514
  Transmission Date: 20150821
  Serious: Yes (Death, Hospitalization)
  Sender: FDA-Public Use
  Company Number: US-2015CRT000398

PATIENT
  Age: 81 Year
  Sex: Female
  Weight: 70.3 kg

DRUGS (11)
  1. PERCOCET (OXYCODONE HYDROCHLORIDE, OXYCODONE TEREPHTHALATE, PARACETAMOL) [Concomitant]
  2. LINSINOPRIL [Concomitant]
  3. KORLYM [Suspect]
     Active Substance: MIFEPRISTONE
     Indication: PITUITARY-DEPENDENT CUSHING^S SYNDROME
     Dosage: 1 DF, QD, ORAL
     Route: 048
     Dates: start: 20141112
  4. METOPROLOL [Concomitant]
     Active Substance: METOPROLOL
  5. POTASSIUM [Concomitant]
     Active Substance: POTASSIUM
  6. LANTUS [Concomitant]
     Active Substance: INSULIN GLARGINE
  7. HYDRALAZINE [Concomitant]
     Active Substance: HYDRALAZINE HYDROCHLORIDE
  8. NATEGLINIDE. [Concomitant]
     Active Substance: NATEGLINIDE
  9. AMLODIPINE [Concomitant]
     Active Substance: AMLODIPINE BESYLATE
  10. FUROSEMIDE. [Concomitant]
     Active Substance: FUROSEMIDE
  11. LEVOTHYROXINE [Concomitant]
     Active Substance: LEVOTHYROXINE

REACTIONS (6)
  - Abdominal discomfort [None]
  - Gastric disorder [None]
  - Aphagia [None]
  - Hypophagia [None]
  - Oligodipsia [None]
  - Nausea [None]

NARRATIVE: CASE EVENT DATE: 20150406
